FAERS Safety Report 6039588-6 (Version None)
Quarter: 2009Q1

REPORT INFORMATION
  Report Type: 
  Country: None (occurrence: None)
  Receive Date: 20090116
  Receipt Date: 20090108
  Transmission Date: 20090719
  Serious: Yes (Other)
  Sender: FDA-Public Use
  Company Number: US-ASTRAZENECA-2009UW00941

PATIENT
  Sex: Male

DRUGS (4)
  1. SEROQUEL [Suspect]
     Route: 048
     Dates: start: 20000101, end: 20080801
  2. WELLBUTRIN SR [Suspect]
     Dates: start: 20000101, end: 20080801
  3. ZYPREXA [Suspect]
     Dates: start: 20000101, end: 20080101
  4. ABILIFY [Concomitant]

REACTIONS (6)
  - BALANCE DISORDER [None]
  - BRAIN INJURY [None]
  - CARDIAC DISORDER [None]
  - LIVER INJURY [None]
  - SKIN PAPILLOMA [None]
  - VISUAL ACUITY REDUCED [None]
